FAERS Safety Report 8594672-8 (Version None)
Quarter: 2012Q3

REPORT INFORMATION
  Report Type: 
  Country: None (occurrence: None)
  Receive Date: 20120815
  Receipt Date: 20120809
  Transmission Date: 20120928
  Serious: No
  Sender: FDA-Public Use
  Company Number: US-PFIZER INC-2012194863

PATIENT
  Sex: Female

DRUGS (3)
  1. LEVOXYL [Suspect]
     Indication: HYPOTHYROIDISM
     Dosage: 12.5 UG, 1X/DAY (CUTTING 25MCG TABLET INTO HALF)
     Route: 048
     Dates: start: 20120101
  2. LEVOXYL [Suspect]
     Dosage: UNK, ONCE A DAY (TAKING HALF OF 25MCG TABLET AND A FRACTION MORE OF THE OTHER HALF)
     Dates: start: 20120601
  3. LEVOTHYROXINE SODIUM [Suspect]
     Indication: HYPOTHYROIDISM
     Dosage: 12.5 UG, 1X/DAY (12.5MCG ORAL TABLET ONCE A DAY BY CUTTING 25MCG TABLET INTO HALF)
     Route: 048

REACTIONS (4)
  - PALPITATIONS [None]
  - BLOOD THYROID STIMULATING HORMONE INCREASED [None]
  - EXTRASYSTOLES [None]
  - DRUG INTOLERANCE [None]
